FAERS Safety Report 23044280 (Version 1)
Quarter: 2023Q4

REPORT INFORMATION
  Report Type: Spontaneous
  Country: US (occurrence: US)
  Receive Date: 20231009
  Receipt Date: 20231009
  Transmission Date: 20240110
  Serious: No
  Sender: FDA-Public Use
  Company Number: US-SANOFI-01786685

PATIENT
  Age: 43 Year
  Sex: Female

DRUGS (3)
  1. LANTUS SOLOSTAR [Suspect]
     Active Substance: INSULIN GLARGINE
     Indication: Type 2 diabetes mellitus
     Dosage: 33-35 UNITS QD AND DRUG TREATMENT DURATION:NEW PEN
  2. TRULICITY [Concomitant]
     Active Substance: DULAGLUTIDE
     Dosage: QW
  3. TRULICITY [Concomitant]
     Active Substance: DULAGLUTIDE

REACTIONS (1)
  - Product dispensing issue [Unknown]
